FAERS Safety Report 7898895-2 (Version None)
Quarter: 2011Q4

REPORT INFORMATION
  Report Type: 
  Country: None (occurrence: None)
  Receive Date: 20111107
  Receipt Date: 20111102
  Transmission Date: 20120403
  Serious: Yes (Death, Hospitalization)
  Sender: FDA-Public Use
  Company Number: FR-ASTRAZENECA-2011SE66149

PATIENT
  Sex: Female

DRUGS (4)
  1. HYDROCORTISONE [Concomitant]
     Indication: CROHN'S DISEASE
  2. NEXIUM [Suspect]
     Indication: GASTROOESOPHAGEAL REFLUX DISEASE
     Route: 048
     Dates: start: 20110601, end: 20111001
  3. SUTENT [Suspect]
     Indication: RENAL CELL CARCINOMA
     Dosage: 50 MILLIGRAMS PER DAY FOR 4 WEEKS AND THEN, INTERRUPTION OF 2 WEEKS
     Route: 048
     Dates: start: 20110601, end: 20111001
  4. ALENDRONATE SODIUM [Concomitant]
     Indication: OSTEOPOROSIS

REACTIONS (2)
  - HEMIPLEGIA [None]
  - CEREBRAL HAEMATOMA [None]
